FAERS Safety Report 9907047 (Version 2)
Quarter: 2014Q2

REPORT INFORMATION
  Report Type: Spontaneous
  Country: US (occurrence: US)
  Receive Date: 20140218
  Receipt Date: 20140411
  Transmission Date: 20141212
  Serious: Yes (Life-Threatening, Hospitalization)
  Sender: FDA-Public Use
  Company Number: US-LUNDBECK-DKLU1097395

PATIENT
  Age: 2 Year
  Sex: Female
  Weight: 11 kg

DRUGS (20)
  1. SABRIL (FOR ORAL SOLUTION) [Suspect]
     Indication: EPILEPSY
     Route: 048
     Dates: start: 201308
  2. SABRIL (FOR ORAL SOLUTION) [Suspect]
     Indication: INFANTILE SPASMS
     Route: 048
     Dates: start: 20120806
  3. SABRIL (FOR ORAL SOLUTION) [Suspect]
     Route: 048
  4. ONFI [Concomitant]
     Indication: PRODUCT USED FOR UNKNOWN INDICATION
     Route: 048
  5. ONFI [Concomitant]
     Route: 048
  6. ONFI [Concomitant]
     Route: 048
  7. TOPAMAX [Concomitant]
     Indication: PRODUCT USED FOR UNKNOWN INDICATION
     Route: 048
  8. BANZEL [Concomitant]
     Indication: PRODUCT USED FOR UNKNOWN INDICATION
  9. FLOVENT [Concomitant]
     Indication: PRODUCT USED FOR UNKNOWN INDICATION
  10. GLYCOPYRROLATE [Concomitant]
     Indication: PRODUCT USED FOR UNKNOWN INDICATION
  11. CLONAZEPAM [Concomitant]
     Indication: CONVULSION
     Route: 048
  12. CLONAZEPAM [Concomitant]
     Indication: SEIZURE CLUSTER
  13. CLORAZEPATE [Concomitant]
     Indication: PRODUCT USED FOR UNKNOWN INDICATION
     Route: 048
  14. DIASTAT ACUDIAL [Concomitant]
     Indication: CONVULSION
     Route: 050
  15. DIASTAT ACUDIAL [Concomitant]
     Indication: SEIZURE CLUSTER
  16. EPINEPHRINE [Concomitant]
     Indication: HYPERSENSITIVITY
     Route: 050
  17. MIRALAX [Concomitant]
     Indication: CONSTIPATION
     Dosage: 0.5 CAPFULS
     Route: 048
  18. VITAMIN D [Concomitant]
     Indication: PRODUCT USED FOR UNKNOWN INDICATION
     Dosage: 800 UNITS
     Route: 048
  19. PHLEXY-VITS [Concomitant]
     Indication: PRODUCT USED FOR UNKNOWN INDICATION
  20. PHENYTOIN [Concomitant]
     Indication: PRODUCT USED FOR UNKNOWN INDICATION
     Route: 048

REACTIONS (9)
  - Septic shock [Recovered/Resolved]
  - Status asthmaticus [Unknown]
  - Metapneumovirus infection [Recovered/Resolved]
  - Klebsiella infection [Unknown]
  - Urinary tract infection bacterial [Unknown]
  - Clostridium difficile colitis [Unknown]
  - Lobar pneumonia [Recovered/Resolved]
  - Respiratory distress [Unknown]
  - Convulsion [Recovered/Resolved]
